FAERS Safety Report 5207886-1 (Version None)
Quarter: 2007Q1

REPORT INFORMATION
  Report Type: 
  Country: None (occurrence: None)
  Receive Date: 20070112
  Receipt Date: 20070105
  Transmission Date: 20070707
  Serious: Yes (Other)
  Sender: FDA-Public Use
  Company Number: DE-PFIZER INC-2007002801

PATIENT
  Age: 57 Year
  Sex: Male

DRUGS (2)
  1. ATORVASTATIN CALCIUM [Suspect]
     Indication: PROPHYLAXIS
     Dosage: DAILY DOSE:20MG
     Route: 048
     Dates: start: 20060901, end: 20070104
  2. ASPIRIN [Concomitant]
     Route: 048

REACTIONS (3)
  - DISTURBANCE IN ATTENTION [None]
  - LIPIDS ABNORMAL [None]
  - MEMORY IMPAIRMENT [None]
